FAERS Safety Report 25795333 (Version 1)
Quarter: 2025Q3

REPORT INFORMATION
  Report Type: Spontaneous
  Country: EU (occurrence: EU)
  Receive Date: 20250912
  Receipt Date: 20250912
  Transmission Date: 20251021
  Serious: Yes (Life-Threatening, Hospitalization, Other)
  Sender: RANBAXY
  Company Number: EU-MINISAL02-1042657

PATIENT
  Age: 13 Year
  Sex: Female
  Weight: 55 kg

DRUGS (2)
  1. SERTRALINE [Suspect]
     Active Substance: SERTRALINE HYDROCHLORIDE
     Indication: Product used for unknown indication
     Dosage: 200 MILLIGRAM, QD, 4 TABLETS OF 50 MG (TOTAL 200 MG)
     Route: 048
     Dates: start: 20250525, end: 20250525
  2. NIAPRAZINE [Suspect]
     Active Substance: NIAPRAZINE
     Indication: Product used for unknown indication
     Dosage: 15 MILLILITER, QD, THE PATIENT HAS TAKEN NIAPRAZINE 15 MG/5ML ONE AND A HALF DOSING (15 ML)
     Route: 048
     Dates: start: 20250525, end: 20250525

REACTIONS (5)
  - Syncope [Recovered/Resolved]
  - Drug abuse [Recovered/Resolved]
  - Somnolence [Recovered/Resolved]
  - Confusional state [Recovered/Resolved]
  - Vomiting [Recovered/Resolved]

NARRATIVE: CASE EVENT DATE: 20250525
